FAERS Safety Report 5160388-3 (Version None)
Quarter: 2006Q4

REPORT INFORMATION
  Report Type: 
  Country: None (occurrence: None)
  Receive Date: 20061121
  Receipt Date: 20061114
  Transmission Date: 20070319
  Serious: Yes (Other)
  Sender: FDA-Public Use
  Company Number: 163-21880-06110779

PATIENT
  Sex: Male

DRUGS (1)
  1. REVLIMID [Suspect]
     Indication: MYELODYSPLASTIC SYNDROME
     Dosage: 5 MG, QD X21 DAYS THEN 7 DAYS OFF, ORAL
     Route: 048
     Dates: start: 20060825

REACTIONS (1)
  - SPINAL COMPRESSION FRACTURE [None]
